FAERS Safety Report 8889461 (Version 1)
Quarter: 2012Q4

REPORT INFORMATION
  Report Type: Spontaneous
  Country: US (occurrence: None)
  Receive Date: 20121102
  Receipt Date: 20121102
  Transmission Date: 20130627
  Serious: No
  Sender: FDA-Public Use
  Company Number: None

PATIENT
  Sex: Male
  Weight: 71.6 kg

DRUGS (6)
  1. ALFA 2 INTERFERON 2B (INTRON-A) [Suspect]
  2. COMPAZINE [Concomitant]
  3. KYTRIL [Concomitant]
  4. MIRRALAX [Concomitant]
  5. TYLENOL [Concomitant]
  6. ZOFRAN [Concomitant]

REACTIONS (1)
  - Aspartate aminotransferase increased [None]
